FAERS Safety Report 7994599-6 (Version None)
Quarter: 2011Q4

REPORT INFORMATION
  Report Type: 
  Country: None (occurrence: None)
  Receive Date: 20111220
  Receipt Date: 20110826
  Transmission Date: 20120403
  Serious: Yes (Other)
  Sender: FDA-Public Use
  Company Number: US-BAYER-2011-006574

PATIENT
  Age: 31 Year
  Sex: Female
  Weight: 106.58 kg

DRUGS (17)
  1. ALBUTEROL [Concomitant]
     Indication: ASTHMA
     Dosage: UNK UNK, PRN
  2. ALLEGRA [Concomitant]
     Indication: MULTIPLE ALLERGIES
     Dosage: 180 MG, QD
     Dates: start: 20010101
  3. YASMIN [Suspect]
     Dosage: UNK
     Route: 048
     Dates: start: 20070101, end: 20090101
  4. ANTIBIOTICS [Concomitant]
     Indication: INFECTION
     Dosage: UNK UNK, PRN
  5. ASCORBIC ACID [Concomitant]
     Indication: NASOPHARYNGITIS
     Dosage: UNK UNK, PRN
  6. CLARITIN [Concomitant]
     Indication: MULTIPLE ALLERGIES
     Dosage: 180 MG, QD
     Dates: start: 20010101
  7. YAZ [Suspect]
     Dosage: UNK
     Route: 048
     Dates: start: 20070101, end: 20090101
  8. DROSPIRENONE AND ETHINYL ESTRADIOL [Suspect]
     Dosage: UNK
     Route: 048
     Dates: start: 20070101, end: 20090101
  9. ZYRTEC [Concomitant]
     Indication: MULTIPLE ALLERGIES
     Dosage: 180 MG, QD
     Dates: start: 20010101
  10. ZANTAC [Concomitant]
     Indication: GASTROOESOPHAGEAL REFLUX DISEASE
     Dosage: 150 MG, QD
     Dates: start: 20080101
  11. ADVAIR DISKUS 100/50 [Concomitant]
     Indication: ASTHMA
     Dosage: UNK UNK, PRN
  12. MOTRIN [Concomitant]
     Indication: PAIN
     Dosage: UNK UNK, PRN
  13. BENTYL [Concomitant]
     Indication: IRRITABLE BOWEL SYNDROME
     Dosage: 10 MG, PRN
     Dates: start: 20060101
  14. BENTYL [Concomitant]
     Dosage: 120 MG, BID
  15. QUESTRAN [Concomitant]
     Dosage: UNK UNK, BID
     Dates: start: 20090327
  16. FLONASE [Concomitant]
     Indication: MULTIPLE ALLERGIES
     Dosage: 180 MG, QD
     Dates: start: 20010101
  17. VITAMIN D [Concomitant]
     Indication: VITAMIN D DEFICIENCY
     Dosage: UNK
     Dates: start: 20080101

REACTIONS (8)
  - CHOLELITHIASIS [None]
  - CHOLECYSTITIS CHRONIC [None]
  - EMOTIONAL DISTRESS [None]
  - PAIN [None]
  - ANXIETY [None]
  - BILIARY COLIC [None]
  - GALLBLADDER DISORDER [None]
  - INJURY [None]
